FAERS Safety Report 18496599 (Version 1)
Quarter: 2020Q4

REPORT INFORMATION
  Report Type: Spontaneous
  Country: US (occurrence: US)
  Receive Date: 20201112
  Receipt Date: 20201112
  Transmission Date: 20210114
  Serious: Yes (Disabling, Other)
  Sender: FDA-Public Use
  Company Number: US-TEVA-2020-US-1847592

PATIENT
  Age: 41 Year
  Sex: Male

DRUGS (8)
  1. TRAMADOL. [Concomitant]
     Active Substance: TRAMADOL
  2. OXYCODONE [Suspect]
     Active Substance: OXYCODONE
     Route: 065
  3. OXYCONTIN [Suspect]
     Active Substance: OXYCODONE HYDROCHLORIDE
     Route: 065
  4. MORPHINE [Concomitant]
     Active Substance: MORPHINE
  5. PERCOCET [Suspect]
     Active Substance: ACETAMINOPHEN\OXYCODONE HYDROCHLORIDE
     Route: 065
  6. HYDROCODONE AND ACETAMINOPHEN TABLETS [Concomitant]
     Active Substance: ACETAMINOPHEN\HYDROCODONE
  7. OXYCODONE AND ACETAMINOPHEN [Concomitant]
     Active Substance: ACETAMINOPHEN\OXYCODONE HYDROCHLORIDE
  8. MS CONTIN [Concomitant]
     Active Substance: MORPHINE SULFATE

REACTIONS (6)
  - Incorrect product administration duration [Unknown]
  - Dependence [Unknown]
  - Cognitive disorder [Unknown]
  - Impaired work ability [Unknown]
  - Brain injury [Unknown]
  - Disability [Unknown]

NARRATIVE: CASE EVENT DATE: 2010
